FAERS Safety Report 5599292-5 (Version None)
Quarter: 2008Q1

REPORT INFORMATION
  Report Type: 
  Country: None (occurrence: None)
  Receive Date: 20080117
  Receipt Date: 20080109
  Transmission Date: 20080703
  Serious: Yes (Death, Other)
  Sender: FDA-Public Use
  Company Number: 2007-02584

PATIENT
  Age: 57 Year
  Sex: Female
  Weight: 38 kg

DRUGS (3)
  1. VELCADE [Suspect]
     Indication: MULTIPLE MYELOMA
     Dosage: 1.65 MG, INTRAVENOUS
     Route: 042
     Dates: start: 20070508, end: 20070608
  2. DEXAMETHASONE TAB [Concomitant]
  3. ZOMETA [Concomitant]

REACTIONS (3)
  - DISEASE PROGRESSION [None]
  - FACIAL PALSY [None]
  - HERPES ZOSTER [None]
